FAERS Safety Report 16900620 (Version 2)
Quarter: 2019Q4

REPORT INFORMATION
  Report Type: Spontaneous
  Country: US (occurrence: US)
  Receive Date: 20191009
  Receipt Date: 20191218
  Transmission Date: 20200122
  Serious: No
  Sender: FDA-Public Use
  Company Number: US-SA-2019SA271048

PATIENT
  Age: 60 Year
  Sex: Female

DRUGS (2)
  1. VALTREX [Concomitant]
     Active Substance: VALACYCLOVIR HYDROCHLORIDE
  2. DUPIXENT [Suspect]
     Active Substance: DUPILUMAB
     Indication: DERMATITIS ATOPIC
     Dosage: 300 MG, QOW
     Route: 058
     Dates: start: 20190827

REACTIONS (4)
  - Therapeutic response decreased [Unknown]
  - Eye pruritus [Unknown]
  - Dry eye [Unknown]
  - Arthralgia [Unknown]

NARRATIVE: CASE EVENT DATE: 2019
